FAERS Safety Report 26064235 (Version 2)
Quarter: 2025Q4

REPORT INFORMATION
  Report Type: Spontaneous
  Country: JP (occurrence: JP)
  Receive Date: 20251119
  Receipt Date: 20251226
  Transmission Date: 20260117
  Serious: Yes (Death, Hospitalization)
  Sender: UNITED THERAPEUTICS
  Company Number: JP-UNITED THERAPEUTICS-UNT-2024-019451

PATIENT
  Age: 76 Year
  Sex: Female

DRUGS (2)
  1. TREPROSTINIL [Suspect]
     Active Substance: TREPROSTINIL
     Indication: Pulmonary arterial hypertension
     Dosage: 36 ?G, QID
     Dates: start: 20231113, end: 2024
  2. TREPROSTINIL [Suspect]
     Active Substance: TREPROSTINIL
     Dosage: 54 ?G, QID
     Dates: start: 202406, end: 20251107

REACTIONS (8)
  - General physical health deterioration [Fatal]
  - Cognitive disorder [Unknown]
  - Hypoaesthesia oral [Unknown]
  - Cough [Unknown]
  - Physical deconditioning [Unknown]
  - Nasopharyngitis [Unknown]
  - Headache [Unknown]
  - Inappropriate schedule of product administration [Recovered/Resolved]

NARRATIVE: CASE EVENT DATE: 20240510
